FAERS Safety Report 4882208-4 (Version None)
Quarter: 2006Q1

REPORT INFORMATION
  Report Type: 
  Country: None (occurrence: None)
  Receive Date: 20060117
  Receipt Date: 20050406
  Transmission Date: 20060701
  Serious: Yes (Hospitalization)
  Sender: FDA-Public Use
  Company Number: US-MERCK-0504USA01018

PATIENT
  Age: 55 Year
  Sex: Male
  Weight: 105 kg

DRUGS (12)
  1. VIOXX [Suspect]
     Indication: ARTHRITIS
     Route: 048
     Dates: start: 20000101, end: 20030101
  2. VIOXX [Suspect]
     Indication: PAIN
     Route: 048
     Dates: start: 20000101, end: 20030101
  3. VALIUM [Concomitant]
     Route: 065
  4. COUMADIN [Concomitant]
     Route: 065
  5. ZYRTEC [Concomitant]
     Route: 065
  6. MAXZIDE [Concomitant]
     Route: 065
  7. INSULIN [Concomitant]
     Route: 065
  8. PREVACID [Concomitant]
     Route: 065
  9. HYDROCHLOROTHIAZIDE [Concomitant]
     Route: 065
  10. NAPROXEN [Concomitant]
     Route: 065
  11. VICODIN [Concomitant]
     Route: 065
  12. TYLENOL (CAPLET) [Concomitant]
     Route: 065

REACTIONS (9)
  - ARTHRALGIA [None]
  - CELLULITIS [None]
  - CEREBROVASCULAR ACCIDENT [None]
  - CHEST WALL ABSCESS [None]
  - DEEP VEIN THROMBOSIS [None]
  - OSTEOARTHRITIS [None]
  - PULMONARY EMBOLISM [None]
  - RENAL FAILURE CHRONIC [None]
  - SEPSIS [None]
